FAERS Safety Report 4520623-9 (Version None)
Quarter: 2004Q4

REPORT INFORMATION
  Report Type: 
  Country: None (occurrence: None)
  Receive Date: 20041203
  Receipt Date: 20041115
  Transmission Date: 20050328
  Serious: Yes (Hospitalization)
  Sender: FDA-Public Use
  Company Number: 209486

PATIENT
  Age: 54 Year
  Sex: Female
  Weight: 139.3 kg

DRUGS (21)
  1. RITUXIMAB (RITUXIMAB) CONC FOR SOLUTION FOR INFUSION [Suspect]
     Indication: RHEUMATOID ARTHRITIS
     Dosage: 1000 MG, DAYS 1 +15, INTRAVENOUS
     Route: 042
     Dates: start: 20040511, end: 20040527
  2. RITUXIMAB (RITUXIMAB) CONC FOR SOLUTION FOR INFUSION [Suspect]
     Indication: RHEUMATOID ARTHRITIS
     Dosage: 1000 MG, DAYS 1 +15, INTRAVENOUS
     Route: 042
     Dates: start: 20040915
  3. PREDNISONE [Suspect]
     Indication: RHEUMATOID ARTHRITIS
     Dosage: SEE IMAGE
     Route: 048
     Dates: start: 20040916, end: 20040928
  4. METHYLPREDNISOLONE [Suspect]
     Indication: RHEUMATOID ARTHRITIS
     Dosage: 100 MG , DAYS 1 + 15, INTRAVENOUS
     Route: 042
     Dates: start: 20040915
  5. PREDNISONE [Concomitant]
  6. VICODIN ES (HYDROCODONE BITARTRATE,  ACETAMINOPHEN) [Concomitant]
  7. DARVOCENT-N 100 (ACETAMINOPHEN, PROPOXYPHENE  NAPSYLATE) [Concomitant]
  8. FOLIC ACID (FOLIC ACID0 [Concomitant]
  9. ACETAMINOPHEN [Concomitant]
  10. VENLAFAXINE HCL [Concomitant]
  11. ALPRAZOLAM [Concomitant]
  12. PROGESTERONE [Concomitant]
  13. ESTROGEN (ESTROGEN NOS) [Concomitant]
  14. AMITRIPTYLINE HYDROCHLORIDE [Concomitant]
  15. PROCHLORPERAZINE [Concomitant]
  16. VITAMIN B COMPLEX (VITAMIN B COMPLEX ) [Concomitant]
  17. DIPHENHYDRAMINE (DIPHENHYDRAMINE NOS) [Concomitant]
  18. IMODIUM [Concomitant]
  19. MECLIZINE HCL [Concomitant]
  20. HYDROCHLOROTHIAZIDE [Concomitant]
  21. METHOTREXATE [Concomitant]

REACTIONS (12)
  - BACTERIAL INFECTION [None]
  - DEHYDRATION [None]
  - HYPOKALAEMIA [None]
  - HYPONATRAEMIA [None]
  - MALAISE [None]
  - PNEUMOCYSTIS CARINII PNEUMONIA [None]
  - PNEUMONIA PRIMARY ATYPICAL [None]
  - PULMONARY FIBROSIS [None]
  - PULMONARY TOXICITY [None]
  - RHONCHI [None]
  - SINUSITIS [None]
  - WHEEZING [None]
